FAERS Safety Report 13112714 (Version 2)
Quarter: 2017Q1

REPORT INFORMATION
  Report Type: Spontaneous
  Country: US (occurrence: US)
  Receive Date: 20170113
  Receipt Date: 20170130
  Transmission Date: 20170428
  Serious: Yes (Hospitalization)
  Sender: FDA-Public Use
  Company Number: US-ALEXION PHARMACEUTICALS INC-A201700098

PATIENT
  Sex: Female

DRUGS (1)
  1. SOLIRIS [Suspect]
     Active Substance: ECULIZUMAB
     Indication: HAEMOLYTIC URAEMIC SYNDROME
     Dosage: UNK
     Route: 042

REACTIONS (7)
  - Platelet count decreased [Unknown]
  - Incontinence [Unknown]
  - Decubitus ulcer [Unknown]
  - Blood creatinine increased [Unknown]
  - Herpes zoster [Unknown]
  - Blood sodium increased [Unknown]
  - Anaemia [Not Recovered/Not Resolved]
